FAERS Safety Report 7466285-2 (Version None)
Quarter: 2011Q2

REPORT INFORMATION
  Report Type: 
  Country: None (occurrence: None)
  Receive Date: 20110509
  Receipt Date: 20100716
  Transmission Date: 20111010
  Serious: No
  Sender: FDA-Public Use
  Company Number: US-ALEXION-A201000840

PATIENT
  Sex: Male

DRUGS (5)
  1. SOLIRIS [Suspect]
     Indication: PAROXYSMAL NOCTURNAL HAEMOGLOBINURIA
     Dosage: 600 MG, UNK
     Route: 042
     Dates: start: 20070613
  2. EXJADE [Concomitant]
     Dosage: 2500 MG, QD
  3. FOLIC ACID [Concomitant]
     Dosage: 1000 UG, QD
     Route: 048
  4. PROTONIX [Concomitant]
     Dosage: 40 MG, QD
     Route: 048
  5. SOLIRIS [Suspect]
     Dosage: 900 MG, Q2W
     Route: 042
     Dates: start: 20070711

REACTIONS (6)
  - ARTHRALGIA [None]
  - BACK PAIN [None]
  - MEMORY IMPAIRMENT [None]
  - HYPOAESTHESIA [None]
  - ABDOMINAL PAIN [None]
  - NIGHT SWEATS [None]
